FAERS Safety Report 19801988 (Version 1)
Quarter: 2021Q3

REPORT INFORMATION
  Report Type: Spontaneous
  Country: US (occurrence: US)
  Receive Date: 20210908
  Receipt Date: 20210908
  Transmission Date: 20211014
  Serious: No
  Sender: FDA-Public Use
  Company Number: US-CADILA HEALTHCARE LIMITED-US-ZYDUS-066772

PATIENT

DRUGS (1)
  1. CHLORTHALIDONE 25 MILLIGRAM TABLET [Suspect]
     Active Substance: CHLORTHALIDONE
     Indication: HYPERTENSION
     Dosage: 25 MILLIGRAM
     Route: 048
     Dates: start: 202105

REACTIONS (2)
  - Drug ineffective [Unknown]
  - Product substitution [Unknown]

NARRATIVE: CASE EVENT DATE: 202105
